FAERS Safety Report 5326297-1 (Version None)
Quarter: 2007Q2

REPORT INFORMATION
  Report Type: 
  Country: None (occurrence: None)
  Receive Date: 20070514
  Receipt Date: 20070514
  Transmission Date: 20071010
  Serious: Yes (Hospitalization)
  Sender: FDA-Public Use
  Company Number: None

PATIENT
  Age: 3 Year
  Sex: Female
  Weight: 15 kg

DRUGS (2)
  1. EXJADE [Suspect]
     Indication: IRON OVERLOAD
     Dosage: 500 MG ONCE A DAY 4 DAYS/WEEK PO
     Route: 048
     Dates: start: 20060526, end: 20070307
  2. EXJADE [Suspect]
     Dosage: 625 MG ONCE A DAY 3 DAYS/WEEK PO
     Route: 048

REACTIONS (5)
  - ABDOMINAL PAIN [None]
  - HYPOKALAEMIA [None]
  - HYPOPHOSPHATAEMIA [None]
  - METABOLIC ACIDOSIS [None]
  - RENAL TUBULAR ACIDOSIS [None]
